FAERS Safety Report 11645679 (Version 1)
Quarter: 2015Q4

REPORT INFORMATION
  Report Type: Spontaneous
  Country: GB (occurrence: GB)
  Receive Date: 20151020
  Receipt Date: 20151020
  Transmission Date: 20160304
  Serious: Yes (Other)
  Sender: FDA-Public Use
  Company Number: GB-BAXTER-2015BAX055949

PATIENT
  Age: 57 Year
  Sex: Male

DRUGS (22)
  1. NAVELBINE [Suspect]
     Active Substance: VINORELBINE TARTRATE
     Indication: OFF LABEL USE
  2. ACICLOVIR [Suspect]
     Active Substance: ACYCLOVIR
     Indication: HODGKIN^S DISEASE
     Dosage: REGIMEN #1
     Route: 048
     Dates: start: 2015
  3. CHLORHEXIDINE [Concomitant]
     Active Substance: CHLORHEXIDINE
     Indication: PRODUCT USED FOR UNKNOWN INDICATION
     Route: 065
     Dates: start: 2015
  4. MESNA TABLETS 600 MG [Suspect]
     Active Substance: MESNA
     Route: 048
     Dates: start: 2015
  5. ONDANSETRON [Suspect]
     Active Substance: ONDANSETRON
     Indication: PROPHYLAXIS
     Dosage: DOSE INCREASED
     Route: 048
     Dates: start: 2015
  6. PREDNISOLONE. [Concomitant]
     Active Substance: PREDNISOLONE
     Indication: PRODUCT USED FOR UNKNOWN INDICATION
     Route: 065
     Dates: start: 2015
  7. FLUCONAZOLE. [Concomitant]
     Active Substance: FLUCONAZOLE
     Indication: PRODUCT USED FOR UNKNOWN INDICATION
     Route: 065
     Dates: start: 2015
  8. OMEPRAZOLE. [Concomitant]
     Active Substance: OMEPRAZOLE
     Indication: PRODUCT USED FOR UNKNOWN INDICATION
     Route: 048
     Dates: start: 2015
  9. ALLOPURINOL. [Suspect]
     Active Substance: ALLOPURINOL
     Indication: PROPHYLAXIS
  10. GEMCITABINE [Suspect]
     Active Substance: GEMCITABINE\GEMCITABINE HYDROCHLORIDE
     Indication: HODGKIN^S DISEASE
     Dosage: 2 CYCLES. IGEV REGIMEN
     Route: 041
     Dates: start: 2015
  11. PHENYTOIN. [Concomitant]
     Active Substance: PHENYTOIN
     Indication: PRODUCT USED FOR UNKNOWN INDICATION
     Route: 065
     Dates: start: 2015
  12. IFOSFAMIDE 40 MG/ML SOLUTION FOR INFUSION [Suspect]
     Active Substance: IFOSFAMIDE
     Indication: HODGKIN^S DISEASE
     Dosage: 2 CYCLES, IGEV REGIMEN
     Route: 041
     Dates: start: 2015
  13. ACICLOVIR [Suspect]
     Active Substance: ACYCLOVIR
     Indication: PROPHYLAXIS
  14. ALLOPURINOL. [Suspect]
     Active Substance: ALLOPURINOL
     Indication: HODGKIN^S DISEASE
     Dosage: ONCE A DAY, IN THE MORNING, (CYCLE 1 AND 2)
     Route: 048
     Dates: start: 2015
  15. MESNA TABLETS 600 MG [Suspect]
     Active Substance: MESNA
     Indication: PRODUCT USED FOR UNKNOWN INDICATION
     Dosage: CHEMOTHERAPY DAY
     Route: 048
     Dates: start: 2015
  16. MESNA INJECTION [Suspect]
     Active Substance: MESNA
     Indication: PRODUCT USED FOR UNKNOWN INDICATION
     Dosage: CHEMOTHERAPY DAY
     Route: 042
     Dates: start: 2015
  17. MESNA INJECTION [Suspect]
     Active Substance: MESNA
     Route: 042
     Dates: start: 2015
  18. COTRIMOXAZOLE [Suspect]
     Active Substance: SULFAMETHOXAZOLE\TRIMETHOPRIM
     Indication: HODGKIN^S DISEASE
     Dosage: REGIMEN 1, 3 TIMES A WEEK (MONDAY, WEDNESDAY AND FRIDAY)
     Route: 048
     Dates: start: 2015
  19. COTRIMOXAZOLE [Suspect]
     Active Substance: SULFAMETHOXAZOLE\TRIMETHOPRIM
     Indication: PROPHYLAXIS
  20. ONDANSETRON [Suspect]
     Active Substance: ONDANSETRON
     Indication: HODGKIN^S DISEASE
     Dosage: REGIMEN #1
     Route: 048
     Dates: start: 2015
  21. FILGRASTIM [Concomitant]
     Active Substance: FILGRASTIM
     Indication: PRODUCT USED FOR UNKNOWN INDICATION
     Dosage: STARTING ON DAY 7
     Route: 058
     Dates: start: 2015
  22. NAVELBINE [Suspect]
     Active Substance: VINORELBINE TARTRATE
     Indication: HODGKIN^S DISEASE
     Dosage: 2 CYCLES. IGEV REGIMEN
     Route: 041
     Dates: start: 2015

REACTIONS (4)
  - Pruritus [Unknown]
  - Rash [Unknown]
  - Blister [Not Recovered/Not Resolved]
  - Off label use [Unknown]

NARRATIVE: CASE EVENT DATE: 2015
